FAERS Safety Report 6038930-X (Version None)
Quarter: 2009Q1

REPORT INFORMATION
  Report Type: 
  Country: None (occurrence: None)
  Receive Date: 20090114
  Receipt Date: 20090114
  Transmission Date: 20090719
  Serious: Yes (Other)
  Sender: FDA-Public Use
  Company Number: None

PATIENT
  Age: 57 Year
  Sex: Female
  Weight: 122.4712 kg

DRUGS (2)
  1. SYMLIN [Suspect]
     Indication: DIABETES MELLITUS
     Dosage: 120 MG 2 X/DAY 1/ 1/2 MONTHS
  2. METFORMIN [Suspect]
     Indication: DIABETES MELLITUS
     Dosage: 500 MG 2X/DAY PO
     Route: 048

REACTIONS (3)
  - BLOOD GLUCOSE INCREASED [None]
  - DEPRESSION [None]
  - SUICIDAL IDEATION [None]
